FAERS Safety Report 5679599-3 (Version None)
Quarter: 2008Q1

REPORT INFORMATION
  Report Type: 
  Country: None (occurrence: None)
  Receive Date: 20080321
  Receipt Date: 20080304
  Transmission Date: 20080703
  Serious: Yes (Other)
  Sender: FDA-Public Use
  Company Number: A-CH2008-19738

PATIENT
  Age: 45 Year
  Sex: Male

DRUGS (11)
  1. TRACLEER [Suspect]
     Indication: PULMONARY HYPERTENSION
     Dosage: 62.5 MG, BID, ORAL
     Route: 048
     Dates: start: 20071022, end: 20071202
  2. OXYGEN (OXYGEN) [Concomitant]
  3. EMCONCOR (BISOPROLOL) [Concomitant]
  4. ALDACTONE [Concomitant]
  5. OMEPRAZOLE [Concomitant]
  6. FUROSEMIDE [Concomitant]
  7. LISINOPRIL [Concomitant]
  8. EPLERENONE [Concomitant]
  9. PREVENCOR (ATORVASTATIN CALCIUM) [Concomitant]
  10. MINURIN (DESMOPRESSIN) [Concomitant]
  11. SERETIDE (SALMETEROL, FLUTICASONE PROPIONATE) [Concomitant]

REACTIONS (1)
  - RENAL FAILURE [None]
